FAERS Safety Report 23479235 (Version 1)
Quarter: 2024Q1

REPORT INFORMATION
  Report Type: Spontaneous
  Country: GB (occurrence: GB)
  Receive Date: 20240205
  Receipt Date: 20240205
  Transmission Date: 20240410
  Serious: Yes (Hospitalization)
  Sender: FDA-Public Use
  Company Number: GB-MHRA-TPP51326985C9607328YC1705666776580

PATIENT
  Age: 21 Year
  Sex: Female
  Weight: 59 kg

DRUGS (9)
  1. IBUPROFEN [Suspect]
     Active Substance: IBUPROFEN
     Indication: Product used for unknown indication
     Dosage: UNK
     Route: 065
  2. Cetraben [Concomitant]
     Indication: Product used for unknown indication
     Dosage: UNK (APPLY WHEN REQUIRED - AS EMOLLIENT TO FACE)
     Route: 065
     Dates: start: 20230925
  3. ELOCON [Concomitant]
     Active Substance: MOMETASONE FUROATE
     Indication: Product used for unknown indication
     Dosage: 1 DOSAGE FORM, ONCE A DAY (APPLY THINLY FOR 2 WEEKS DURING SEVE...)
     Route: 061
     Dates: start: 20230925
  4. FERROUS FUMARATE [Concomitant]
     Active Substance: FERROUS FUMARATE
     Indication: Product used for unknown indication
     Dosage: 1 DOSAGE FORM, TWO TIMES A DAY (FOR 3 MONTH COURSE)
     Route: 065
     Dates: start: 20210225
  5. FEXOFENADINE [Concomitant]
     Active Substance: FEXOFENADINE HYDROCHLORIDE
     Indication: Product used for unknown indication
     Dosage: 1 DOSAGE FORM, ONCE A DAY
     Route: 065
     Dates: start: 20230227
  6. HYLO FORTE [Concomitant]
     Indication: Product used for unknown indication
     Dosage: 1 GTT DROPS (IN THE AFFECTED EYE(S) EVERY THREE...)
     Route: 065
     Dates: start: 20230227
  7. PROTOPIC [Concomitant]
     Active Substance: TACROLIMUS
     Indication: Eczema
     Dosage: 1 DOSAGE FORM, TWO TIMES A DAY (APPLY THINLY WHEN ECZEMA SEVERE AND...)
     Route: 061
     Dates: start: 20230925
  8. TRANEXAMIC ACID [Concomitant]
     Active Substance: TRANEXAMIC ACID
     Indication: Product used for unknown indication
     Dosage: 1 GRAM, 3 TIMES A DAY ((TWO TABLETS) AS LONG AS ...)
     Route: 065
     Dates: start: 20210225
  9. NORETHINDRONE [Concomitant]
     Active Substance: NORETHINDRONE
     Indication: Product used for unknown indication
     Dosage: 5 MILLIGRAM, 3 TIMES A DAY (TO BE STARTED 3 DAYS BEFORE EXPECTED O..)
     Route: 065
     Dates: start: 20240109

REACTIONS (3)
  - Hypersensitivity [Unknown]
  - Pain [Unknown]
  - Swelling [Recovered/Resolved]
